FAERS Safety Report 8181910-9 (Version None)
Quarter: 2012Q1

REPORT INFORMATION
  Report Type: 
  Country: None (occurrence: None)
  Receive Date: 20120302
  Receipt Date: 20120222
  Transmission Date: 20120608
  Serious: Yes (Other)
  Sender: FDA-Public Use
  Company Number: BR-ABBOTT-12P-020-0897776-00

PATIENT
  Sex: Male
  Weight: 180 kg

DRUGS (4)
  1. HUMIRA [Suspect]
     Indication: PSORIATIC ARTHROPATHY
     Route: 058
     Dates: start: 20100805, end: 20110901
  2. PUVA THERAPY [Concomitant]
     Indication: PRODUCT USED FOR UNKNOWN INDICATION
  3. INFLIXIMAB [Concomitant]
     Indication: PRODUCT USED FOR UNKNOWN INDICATION
  4. METHOTREXATE [Concomitant]
     Indication: PRODUCT USED FOR UNKNOWN INDICATION

REACTIONS (3)
  - OBESITY [None]
  - PSORIASIS [None]
  - DIABETES MELLITUS [None]
